FAERS Safety Report 7118457-4 (Version None)
Quarter: 2010Q4

REPORT INFORMATION
  Report Type: 
  Country: None (occurrence: None)
  Receive Date: 20101027
  Receipt Date: 20100603
  Transmission Date: 20110411
  Serious: Yes (Other)
  Sender: FDA-Public Use
  Company Number: CTI_01127_2010

PATIENT
  Age: 44 Year
  Sex: Female

DRUGS (5)
  1. SPECTRACEF [Suspect]
     Indication: BRONCHITIS
     Dosage: (400 MG QD ORAL)
     Route: 048
     Dates: start: 20100105, end: 20100111
  2. SPECTRACEF [Suspect]
     Indication: PNEUMONIA
     Dosage: (400 MG QD ORAL)
     Route: 048
     Dates: start: 20100105, end: 20100111
  3. FLONASE [Concomitant]
  4. FISH OIL [Concomitant]
  5. ALLEGRA [Concomitant]

REACTIONS (2)
  - ABDOMINAL PAIN [None]
  - CLOSTRIDIAL INFECTION [None]
